FAERS Safety Report 14843771 (Version 1)
Quarter: 2018Q2

REPORT INFORMATION
  Report Type: Spontaneous
  Country: NL (occurrence: NL)
  Receive Date: 20180503
  Receipt Date: 20180503
  Transmission Date: 20180711
  Serious: Yes (Other)
  Sender: FDA-Public Use
  Company Number: NL-MYLANLABS-2018M1028367

PATIENT
  Age: 50 Year

DRUGS (11)
  1. MEROPENEM. [Interacting]
     Active Substance: MEROPENEM
     Indication: PRODUCT USED FOR UNKNOWN INDICATION
     Dosage: 1000 MG THRICE DAILY
     Route: 042
  2. ATORVASTATIN [Concomitant]
     Active Substance: ATORVASTATIN
     Indication: PRODUCT USED FOR UNKNOWN INDICATION
     Dosage: 40 MG, QD
     Route: 065
  3. VALPROIC ACID. [Interacting]
     Active Substance: VALPROIC ACID
     Dosage: 800 MG THRICE DAILY
     Route: 042
  4. PHENYTOIN. [Interacting]
     Active Substance: PHENYTOIN
     Indication: PRODUCT USED FOR UNKNOWN INDICATION
     Dosage: PHENYTOIN WAS STOPPED TWO DAYS AFTER TRANSFER (DURATION OF THERAPY 10 DAYS) AND THEN RESTARTED AT...
     Route: 042
  5. VALPROIC ACID. [Interacting]
     Active Substance: VALPROIC ACID
     Indication: PRODUCT USED FOR UNKNOWN INDICATION
     Route: 042
  6. CARBASALATE CALCIUM [Concomitant]
     Active Substance: CARBASPIRIN
     Indication: PRODUCT USED FOR UNKNOWN INDICATION
     Route: 065
  7. VALPROIC ACID. [Suspect]
     Active Substance: VALPROIC ACID
     Indication: PRODUCT USED FOR UNKNOWN INDICATION
     Route: 048
  8. LOPERAMIDE [Concomitant]
     Active Substance: LOPERAMIDE
     Indication: PRODUCT USED FOR UNKNOWN INDICATION
     Dosage: 1MG THRICE DAILY (DRINK)
     Route: 065
  9. PHENYTOIN. [Interacting]
     Active Substance: PHENYTOIN
     Dosage: 75MG THRICE DAILY
     Route: 042
  10. ESOMEPRAZOLE [Concomitant]
     Active Substance: ESOMEPRAZOLE
     Indication: PRODUCT USED FOR UNKNOWN INDICATION
     Dosage: 10 MG, QD
     Route: 065
  11. DIAZEPAM CLYSMA [Concomitant]
     Indication: PRODUCT USED FOR UNKNOWN INDICATION
     Dosage: 10MG AS NEEDED
     Route: 065

REACTIONS (8)
  - Toxicity to various agents [Unknown]
  - Drug level decreased [Recovering/Resolving]
  - Drug titration error [Unknown]
  - Depressed level of consciousness [Unknown]
  - Hypotension [Unknown]
  - Drug interaction [Recovering/Resolving]
  - Dyspnoea [Unknown]
  - Overdose [Unknown]
